FAERS Safety Report 25656023 (Version 1)
Quarter: 2025Q3

REPORT INFORMATION
  Report Type: Spontaneous
  Country: CN (occurrence: CN)
  Receive Date: 20250807
  Receipt Date: 20250807
  Transmission Date: 20251020
  Serious: Yes (Life-Threatening)
  Sender: ALCON
  Company Number: CN-ALCON LABORATORIES-ALC2025CN003936

PATIENT
  Age: 42 Year
  Sex: Female

DRUGS (2)
  1. FLUORESCEIN SODIUM [Suspect]
     Active Substance: FLUORESCEIN SODIUM
     Indication: Angiogram retina
     Route: 042
     Dates: start: 20250718, end: 20250718
  2. INDOCYANINE GREEN [Suspect]
     Active Substance: INDOCYANINE GREEN
     Indication: Angiogram retina
     Route: 042

REACTIONS (1)
  - Hypotension [Recovering/Resolving]

NARRATIVE: CASE EVENT DATE: 20250718
